FAERS Safety Report 5503892-8 (Version None)
Quarter: 2007Q4

REPORT INFORMATION
  Report Type: 
  Country: None (occurrence: None)
  Receive Date: 20071101
  Receipt Date: 20071017
  Transmission Date: 20080405
  Serious: Yes (Hospitalization)
  Sender: FDA-Public Use
  Company Number: US-ELI_LILLY_AND_COMPANY-US200709001841

PATIENT
  Sex: Female
  Weight: 95.238 kg

DRUGS (11)
  1. BYETTA [Suspect]
     Indication: TYPE 2 DIABETES MELLITUS
     Dosage: 5 UG, 2/D
     Route: 058
     Dates: start: 20060501
  2. BYETTA [Suspect]
     Dosage: 10 UG, 2/D
     Route: 058
     Dates: start: 20060801
  3. COZAAR [Concomitant]
     Dosage: 50 MG, DAILY (1/D)
  4. LORTAB [Concomitant]
     Indication: PAIN
     Dosage: UNK, AS NEEDED
  5. WELCHOL [Concomitant]
     Dosage: 625 MG, 2/D
  6. DYAZIDE [Concomitant]
     Dosage: UNK, DAILY (1/D)
  7. AMBIEN [Concomitant]
     Dosage: 10 MG, EACH EVENING
  8. LYRICA [Concomitant]
     Indication: NEURALGIA
     Dosage: 150 MG, 2/D
  9. NEXIUM [Concomitant]
     Dosage: 40 MG, DAILY (1/D)
  10. MULTI-VITAMIN [Concomitant]
     Dosage: UNK, DAILY (1/D)
  11. INSULIN [Concomitant]
     Dosage: UNK, UNKNOWN

REACTIONS (5)
  - ARTHRALGIA [None]
  - NAUSEA [None]
  - OSTEOARTHRITIS [None]
  - VOMITING [None]
  - WEIGHT DECREASED [None]
